FAERS Safety Report 4401863-6 (Version None)
Quarter: 2004Q3

REPORT INFORMATION
  Report Type: 
  Country: None (occurrence: None)
  Receive Date: 20040714
  Receipt Date: 20040630
  Transmission Date: 20050211
  Serious: Yes (Hospitalization, Other)
  Sender: FDA-Public Use
  Company Number: USA040360686

PATIENT
  Age: 18 Year
  Sex: Male
  Weight: 97 kg

DRUGS (1)
  1. STRATTERA [Suspect]
     Indication: ATTENTION DEFICIT/HYPERACTIVITY DISORDER
     Dosage: 80 MG/1 DAY
     Dates: start: 20030601

REACTIONS (3)
  - DYSPNOEA [None]
  - VIRAL INFECTION [None]
  - VIRAL MYOCARDITIS [None]
